FAERS Safety Report 9690809 (Version 3)
Quarter: 2013Q4

REPORT INFORMATION
  Report Type: Report from Study
  Country: PL (occurrence: PL)
  Receive Date: 20131115
  Receipt Date: 20131225
  Transmission Date: 20140711
  Serious: Yes (Death)
  Sender: FDA-Public Use
  Company Number: PL-AMGEN-POLNI2013079947

PATIENT
  Age: 84 Year
  Sex: Male

DRUGS (11)
  1. DARBEPOETIN ALFA [Suspect]
     Indication: NEPHROGENIC ANAEMIA
     Dosage: 30 MUG + 40 MUG, Q2WK
     Route: 042
     Dates: start: 20130730, end: 20130907
  2. DARBEPOETIN ALFA [Suspect]
     Dosage: UNK
     Route: 042
  3. GLICLAZIDE [Concomitant]
     Dosage: 60 MG, QD
     Route: 048
     Dates: start: 20130802
  4. ACETYLSALICYLIC ACID [Concomitant]
     Dosage: 75 MG, QD
     Route: 048
     Dates: start: 20130326
  5. CLOPIDOGREL [Concomitant]
     Dosage: 75 MG, QD
     Route: 048
     Dates: start: 20130518
  6. NADROPARIN [Concomitant]
     Dosage: 3800 IU, QWK
     Route: 058
     Dates: start: 20130813
  7. PENTOXIFYLLINE [Concomitant]
     Dosage: 400 MG, QD
     Route: 048
     Dates: start: 20130413
  8. FINASTERIDE [Concomitant]
     Dosage: 5 MG, QD
     Route: 048
     Dates: start: 20130319
  9. PANTOPRAZOLE [Concomitant]
     Dosage: 20 MG, QD
     Route: 048
     Dates: start: 20130326
  10. ALLOPURINOL [Concomitant]
     Dosage: 100 MG, QD
     Route: 048
     Dates: start: 20130402
  11. BUPRENORPHINE [Concomitant]
     Dosage: 35 MUG, UNK
     Route: 062
     Dates: start: 20130627

REACTIONS (1)
  - Death [Fatal]
